FAERS Safety Report 8722541 (Version 2)
Quarter: 2012Q4

REPORT INFORMATION
  Report Type: 
  Country: US (occurrence: US)
  Receive Date: 20120814
  Receipt Date: 20121022
  Transmission Date: 20130627
  Serious: Yes (Other)
  Sender: FDA-Public Use
  Company Number: US-BIOMARINP-001689

PATIENT
  Sex: Female
  Weight: 44.5 kg

DRUGS (7)
  1. KUVAN [Suspect]
     Route: 048
     Dates: start: 20080517
  2. KUVAN [Suspect]
     Indication: PHENYLKETONURIA
     Route: 048
     Dates: start: 200805, end: 20121001
  3. PREVACID [Concomitant]
     Indication: PRODUCT USED FOR UNKNOWN INDICATION
  4. MULTIVITAMINS [Concomitant]
     Indication: PRODUCT USED FOR UNKNOWN INDICATION
  5. MINERAL SUPPLEMENTS [Concomitant]
     Indication: PRODUCT USED FOR UNKNOWN INDICATION
  6. ZYRTEC [Concomitant]
     Indication: PRODUCT USED FOR UNKNOWN INDICATION
  7. LORATADINE [Concomitant]
     Indication: MULTIPLE ALLERGIES

REACTIONS (7)
  - Anal fistula [Unknown]
  - Haematochezia [Recovered/Resolved]
  - Abdominal pain upper [Unknown]
  - Abdominal pain upper [Not Recovered/Not Resolved]
  - Constipation [Not Recovered/Not Resolved]
  - Overgrowth bacterial [Unknown]
  - Polyp [None]
